FAERS Safety Report 8134260-0 (Version None)
Quarter: 2012Q1

REPORT INFORMATION
  Report Type: 
  Country: None (occurrence: None)
  Receive Date: 20120209
  Receipt Date: 20120131
  Transmission Date: 20120608
  Serious: Yes (Hospitalization, Disabling, Other)
  Sender: FDA-Public Use
  Company Number: 2012MA001385

PATIENT
  Sex: Female
  Weight: 57.1532 kg

DRUGS (40)
  1. ALBUTEROL [Concomitant]
  2. NIACIN [Concomitant]
  3. XALATAN [Concomitant]
  4. ATENOLOL [Concomitant]
  5. BACTROBAN [Concomitant]
  6. CALCIUM [Concomitant]
  7. NITROGLYCERIN [Concomitant]
  8. PLAVIX [Concomitant]
  9. PREMPRO [Concomitant]
  10. QUININE SULFATE [Concomitant]
  11. ACETAMINOPHEN [Concomitant]
  12. AUGMENTIN '125' [Concomitant]
  13. DETROL [Concomitant]
  14. NAPROXEN [Concomitant]
  15. RAMIPRIL [Concomitant]
  16. ROCEPHIN [Concomitant]
  17. ZYRTEC [Concomitant]
  18. E-MYCIN [Concomitant]
  19. FISH OIL [Concomitant]
  20. HUMIBID [Concomitant]
  21. PREMARIN [Concomitant]
  22. ZITHROMAX [Concomitant]
  23. ALTACE [Concomitant]
  24. AMPICILLIN [Concomitant]
  25. IMITREX [Concomitant]
  26. KEFLEX [Concomitant]
  27. METOPROLOL [Concomitant]
  28. SEPTRA [Concomitant]
  29. VITAMIN D [Concomitant]
  30. ZOCOR [Concomitant]
  31. GINKO BILOBA [Concomitant]
  32. PYRIDINE [Concomitant]
  33. SYMMETREL [Concomitant]
  34. TOPROL-XL [Concomitant]
  35. DIGOXIN [Suspect]
     Dosage: 0.125 MG;QD;PO
     Route: 048
     Dates: start: 19971202, end: 19971210
  36. COMBIVENT [Concomitant]
  37. NAPROSYN [Concomitant]
  38. CIPRO [Concomitant]
  39. DECADRON [Concomitant]
  40. IPRATROPIUM BROMIDE [Concomitant]

REACTIONS (77)
  - CORONARY ARTERY DISEASE [None]
  - FEELING JITTERY [None]
  - BREAST MASS [None]
  - URINARY TRACT INFECTION [None]
  - SINUS CONGESTION [None]
  - FALL [None]
  - VAGINAL DISCHARGE [None]
  - LABORATORY TEST ABNORMAL [None]
  - CHOLELITHIASIS [None]
  - ARTHRITIS [None]
  - ISCHAEMIC CARDIOMYOPATHY [None]
  - DECREASED APPETITE [None]
  - MENOPAUSE [None]
  - SNEEZING [None]
  - BRONCHITIS [None]
  - GENERAL PHYSICAL HEALTH DETERIORATION [None]
  - NOCTURIA [None]
  - FIBROCYSTIC BREAST DISEASE [None]
  - MITRAL VALVE INCOMPETENCE [None]
  - PNEUMONITIS [None]
  - MIGRAINE [None]
  - VAGINAL HAEMORRHAGE [None]
  - PAIN [None]
  - BACK PAIN [None]
  - URINARY INCONTINENCE [None]
  - OEDEMA PERIPHERAL [None]
  - CHOLECYSTITIS CHRONIC [None]
  - DYSURIA [None]
  - TRICUSPID VALVE INCOMPETENCE [None]
  - GRANULOMA [None]
  - TACHYCARDIA PAROXYSMAL [None]
  - NAUSEA [None]
  - MYALGIA [None]
  - BLOOD GLUCOSE INCREASED [None]
  - SINUSITIS [None]
  - CONFUSIONAL STATE [None]
  - DEMENTIA [None]
  - FATIGUE [None]
  - VENTRICULAR EXTRASYSTOLES [None]
  - DISEASE RECURRENCE [None]
  - CARDIOVASCULAR DISORDER [None]
  - ATROPHIC VULVOVAGINITIS [None]
  - RHINITIS ALLERGIC [None]
  - UTERINE POLYP [None]
  - WEIGHT DECREASED [None]
  - CONJUNCTIVAL HAEMORRHAGE [None]
  - HYPERGLYCAEMIA [None]
  - VULVOVAGINAL MYCOTIC INFECTION [None]
  - HYPERKERATOSIS [None]
  - SINUS TACHYCARDIA [None]
  - VIRAL INFECTION [None]
  - MEMORY IMPAIRMENT [None]
  - DIARRHOEA [None]
  - SUPRAVENTRICULAR EXTRASYSTOLES [None]
  - PLEURAL FIBROSIS [None]
  - CHOLECYSTITIS [None]
  - OROPHARYNGEAL PAIN [None]
  - HEADACHE [None]
  - EXCORIATION [None]
  - CHEST PAIN [None]
  - ELECTROCARDIOGRAM ST-T SEGMENT ABNORMAL [None]
  - VOMITING [None]
  - CHILLS [None]
  - NEUTROPHIL COUNT INCREASED [None]
  - ANAEMIA [None]
  - TACHYARRHYTHMIA [None]
  - HYPOACUSIS [None]
  - MELAENA [None]
  - JOINT SWELLING [None]
  - OSTEOPOROSIS [None]
  - DEMENTIA ALZHEIMER'S TYPE [None]
  - CAROTID BRUIT [None]
  - GLAUCOMA [None]
  - LOSS OF LIBIDO [None]
  - RHINITIS [None]
  - CERVICAL CYST [None]
  - LEFT VENTRICULAR HYPERTROPHY [None]
